FAERS Safety Report 6684027-5 (Version None)
Quarter: 2010Q2

REPORT INFORMATION
  Report Type: 
  Country: None (occurrence: None)
  Receive Date: 20100416
  Receipt Date: 20100407
  Transmission Date: 20101027
  Serious: Yes (Other)
  Sender: FDA-Public Use
  Company Number: US-JNJFOC-20100401247

PATIENT
  Age: 11 Year
  Sex: Male

DRUGS (3)
  1. METHYLPHENIDATE [Suspect]
     Indication: ATTENTION DEFICIT/HYPERACTIVITY DISORDER
     Route: 065
  2. ARIPIPRAZOLE [Interacting]
     Indication: ATTENTION DEFICIT/HYPERACTIVITY DISORDER
     Dosage: DOSAGE NOT STATED
  3. ARIPIPRAZOLE [Interacting]
     Indication: BIPOLAR DISORDER
     Dosage: DOSAGE NOT STATED

REACTIONS (2)
  - DRUG INTERACTION [None]
  - DYSTONIA [None]
